FAERS Safety Report 9101353 (Version 4)
Quarter: 2015Q2

REPORT INFORMATION
  Report Type: Spontaneous
  Country: DE (occurrence: DE)
  Receive Date: 20130215
  Receipt Date: 20150414
  Transmission Date: 20150821
  Serious: Yes (Hospitalization, Other)
  Sender: FDA-Public Use
  Company Number: DE-INCYTE CORPORATION-2013IN000287

PATIENT
  Sex: Male

DRUGS (17)
  1. ALVESCO [Concomitant]
     Active Substance: CICLESONIDE
     Indication: PRODUCT USED FOR UNKNOWN INDICATION
     Dosage: 160 MG, (1 STROKE PER DAY) 1-0-1
     Route: 065
  2. JAKAFI [Suspect]
     Active Substance: RUXOLITINIB
     Dosage: 5 MG, 2X2 TABLETS ON SATURDAY AND SUNDAY/5 MG
     Route: 048
     Dates: start: 20141102
  3. JAKAFI [Suspect]
     Active Substance: RUXOLITINIB
     Dosage: 5 MG, 2X1 TABLET MONDAY TO FRIDAY
     Route: 048
  4. PANTOPRAZOLE [Concomitant]
     Active Substance: PANTOPRAZOLE SODIUM
     Indication: PRODUCT USED FOR UNKNOWN INDICATION
     Dosage: 20 MG, QD (ONE PER DAY) 1-0-0
     Route: 065
  5. PENTALONG [Concomitant]
     Active Substance: PENTAERYTHRITOL TETRANITRATE
     Indication: PRODUCT USED FOR UNKNOWN INDICATION
     Dosage: 50 MG, (1 IN THE MORNING 1 IN THE EVENING) 1-0-1
     Route: 065
  6. ENOXAPARIN [Concomitant]
     Active Substance: ENOXAPARIN
     Indication: PRODUCT USED FOR UNKNOWN INDICATION
     Dosage: 80 MG, UNK
     Route: 065
     Dates: start: 20150323
  7. JAKAFI [Suspect]
     Active Substance: RUXOLITINIB
     Dosage: UNK
     Route: 048
     Dates: start: 20121114, end: 20121128
  8. JAKAFI [Suspect]
     Active Substance: RUXOLITINIB
     Dosage: 15 MG, QD 0-0-1
     Route: 048
     Dates: start: 20121129, end: 20130423
  9. JAKAFI [Suspect]
     Active Substance: RUXOLITINIB
     Dosage: 15 MG, MONDAY TO FRIDAY AND PAUSE ON SATURDAY AND SUNDAY
     Route: 048
     Dates: start: 20130424
  10. DELIX [Concomitant]
     Active Substance: RAMIPRIL
     Indication: PRODUCT USED FOR UNKNOWN INDICATION
     Dosage: 5 MG, QD, (ONE PER DAY) 1-0-0
     Route: 065
  11. NEBIVOLOL [Concomitant]
     Active Substance: NEBIVOLOL
     Indication: PRODUCT USED FOR UNKNOWN INDICATION
     Dosage: 5 MG, TID (TWO TIMES DAILY)
     Route: 065
  12. FALITHROM [Concomitant]
     Active Substance: PHENPROCOUMON
     Indication: INTERNATIONAL NORMALISED RATIO ABNORMAL
     Dosage: 6 MG, (QW) PER WEEK
     Route: 065
  13. HYDREA [Concomitant]
     Active Substance: HYDROXYUREA
     Indication: PRODUCT USED FOR UNKNOWN INDICATION
     Dosage: 2-0-2
     Route: 065
  14. CLARITHROMYCIN. [Concomitant]
     Active Substance: CLARITHROMYCIN
     Indication: PRODUCT USED FOR UNKNOWN INDICATION
     Dosage: 500, 2X1 DOSAGE FORM
     Route: 065
  15. SALBUHEXAL [Concomitant]
     Active Substance: ALBUTEROL
     Indication: PRODUCT USED FOR UNKNOWN INDICATION
     Dosage: ON DEMAND 2 HUBS
     Route: 065
  16. JAKAFI [Suspect]
     Active Substance: RUXOLITINIB
     Indication: MYELOFIBROSIS
     Dosage: 15 MG, BID
     Route: 048
     Dates: start: 20121022, end: 20121113
  17. SALBUHEXAL//SALBUTAMOL [Concomitant]
     Indication: PRODUCT USED FOR UNKNOWN INDICATION
     Dosage: UNK, PRN
     Route: 065

REACTIONS (9)
  - Bronchitis [Unknown]
  - Weight decreased [Unknown]
  - Musculoskeletal pain [Not Recovered/Not Resolved]
  - Pulmonary hypertension [Unknown]
  - Pneumonia [Recovered/Resolved]
  - Full blood count decreased [Recovering/Resolving]
  - Flatulence [Not Recovered/Not Resolved]
  - Splenomegaly [Unknown]
  - Dyspnoea [Unknown]

NARRATIVE: CASE EVENT DATE: 201210
